FAERS Safety Report 18337528 (Version 1)
Quarter: 2020Q4

REPORT INFORMATION
  Report Type: Spontaneous
  Country: PL (occurrence: PL)
  Receive Date: 20201002
  Receipt Date: 20201002
  Transmission Date: 20210113
  Serious: Yes (Hospitalization, Other)
  Sender: FDA-Public Use
  Company Number: PL-LUPIN PHARMACEUTICALS INC.-2020-06769

PATIENT
  Age: 46 Year
  Sex: Male

DRUGS (1)
  1. CEFUROXIME. [Suspect]
     Active Substance: CEFUROXIME
     Indication: PRODUCT USED FOR UNKNOWN INDICATION
     Dosage: 1MG/0.1ML SOLUTION INTO THE ANTERIOR CHAMBER

REACTIONS (4)
  - Macular oedema [Recovered/Resolved]
  - Macular detachment [Recovered/Resolved]
  - Toxicity to various agents [Recovered/Resolved]
  - Product preparation error [Unknown]
